FAERS Safety Report 9870965 (Version 1)
Quarter: 2014Q1

REPORT INFORMATION
  Report Type: Spontaneous
  Country: RU (occurrence: None)
  Receive Date: 20140203
  Receipt Date: 20140203
  Transmission Date: 20141002
  Serious: Yes (Other)
  Sender: FDA-Public Use
  Company Number: KAD201401-000045

PATIENT
  Age: 37 Year
  Sex: Female
  Weight: 68 kg

DRUGS (2)
  1. RIBAVIRIN [Suspect]
     Indication: HEPATITIS C
     Route: 048
     Dates: start: 20130708, end: 20131028
  2. SOF (SOFOSBUVIR) [Suspect]
     Indication: HEPATITIS C
     Route: 048
     Dates: start: 20130708, end: 20131028

REACTIONS (3)
  - Maternal exposure before pregnancy [None]
  - Treatment noncompliance [None]
  - Abortion induced [None]
